FAERS Safety Report 4298953-8 (Version None)
Quarter: 2004Q1

REPORT INFORMATION
  Report Type: 
  Country: None (occurrence: None)
  Receive Date: 20040219
  Receipt Date: 20040211
  Transmission Date: 20041129
  Serious: Yes (Other)
  Sender: FDA-Public Use
  Company Number: PHBS2004IE02048

PATIENT
  Age: 63 Year
  Sex: Male

DRUGS (3)
  1. LAMISIL [Suspect]
     Indication: LOCALISED INFECTION
     Dosage: 250 MG/DAY
     Route: 048
  2. AMIODARONE [Suspect]
     Dosage: 600 MG/D
     Route: 048
  3. DIGOXIN [Concomitant]

REACTIONS (5)
  - ASTHENIA [None]
  - CHILLS [None]
  - HEPATIC FUNCTION ABNORMAL [None]
  - HYPERTONIA [None]
  - PYREXIA [None]
